FAERS Safety Report 8085418-0 (Version None)
Quarter: 2012Q1

REPORT INFORMATION
  Report Type: 
  Country: None (occurrence: None)
  Receive Date: 20120128
  Receipt Date: 20110514
  Transmission Date: 20120608
  Serious: No
  Sender: FDA-Public Use
  Company Number: US-ABBOTT-11P-163-0694961-00

PATIENT
  Age: 36 Year
  Sex: Female

DRUGS (5)
  1. HUMIRA [Suspect]
     Indication: CROHN'S DISEASE
     Dates: start: 20100901
  2. HUMIRA [Suspect]
  3. LEXAPRO [Concomitant]
     Indication: PRODUCT USED FOR UNKNOWN INDICATION
  4. AZTATHINE [Concomitant]
     Indication: PRODUCT USED FOR UNKNOWN INDICATION
  5. ACETAMINOPHEN [Concomitant]
     Indication: PAIN

REACTIONS (5)
  - HEADACHE [None]
  - INFLUENZA [None]
  - PAIN [None]
  - FATIGUE [None]
  - CHILLS [None]
